FAERS Safety Report 21736001 (Version 1)
Quarter: 2022Q4

REPORT INFORMATION
  Report Type: Report from Study
  Country: NZ (occurrence: NZ)
  Receive Date: 20221215
  Receipt Date: 20221215
  Transmission Date: 20230112
  Serious: Yes (Life-Threatening, Hospitalization, Other)
  Sender: FDA-Public Use
  Company Number: NZ-BRISTOL-MYERS SQUIBB COMPANY-2022-151955

PATIENT
  Age: 66 Year
  Sex: Male
  Weight: 66 kg

DRUGS (24)
  1. DOCETAXEL [Suspect]
     Active Substance: DOCETAXEL
     Indication: Prostate cancer
     Dosage: MOST RECENT DOSE RECEIVED ON 27-APR-2022
     Dates: start: 20211022
  2. PREDNISONE [Suspect]
     Active Substance: PREDNISONE
     Indication: Prostate cancer
     Dosage: MOST RECENT DOSE RECEIVED ON 24-MAY-2022
     Route: 048
     Dates: start: 20211022
  3. LAXSOL (DOCUSATE SODIUM + SENNOSIDE) [Concomitant]
     Indication: Product used for unknown indication
     Dosage: 2 (UNITS NOT SPECIFIED)?ONGOING
     Route: 048
     Dates: start: 2018
  4. POLYETHYLENE GLYCOL 3350\POTASSIUM CHLORIDE\SODIUM BICARBONATE\SODIUM [Concomitant]
     Active Substance: POLYETHYLENE GLYCOL 3350\POTASSIUM CHLORIDE\SODIUM BICARBONATE\SODIUM CHLORIDE
     Indication: Product used for unknown indication
     Dosage: 1 (UNITS NOT SPECIFIED)?ONGOING
     Route: 048
     Dates: start: 2018
  5. TEMAZEPAM [Concomitant]
     Active Substance: TEMAZEPAM
     Indication: Product used for unknown indication
     Dosage: ONGOING
     Route: 048
     Dates: start: 20210119
  6. RIZATRIPTAN [Concomitant]
     Active Substance: RIZATRIPTAN
     Indication: Product used for unknown indication
     Dosage: ONGOING
     Route: 048
     Dates: start: 20210830
  7. HYPROMELLOSE 0.3% + DEXTRAN 0.1% [Concomitant]
     Indication: Product used for unknown indication
     Dosage: 1 (UNITS NOT SPECIFIED)?ONGOING
     Route: 031
     Dates: start: 20210909
  8. BENZYDAMINE [Concomitant]
     Active Substance: BENZYDAMINE
     Indication: Product used for unknown indication
     Dosage: 1 (UNITS NOT SPECIFIED)
     Route: 048
     Dates: start: 20220202
  9. PANADOL [Concomitant]
     Active Substance: ACETAMINOPHEN
     Indication: Product used for unknown indication
     Dosage: ONGOING
     Route: 048
     Dates: start: 201712
  10. MORPHINE [Concomitant]
     Active Substance: MORPHINE
     Indication: Product used for unknown indication
     Dosage: ONGOING
     Route: 048
     Dates: start: 20180619
  11. OXYCODONE HYDROCHLORIDE [Concomitant]
     Active Substance: OXYCODONE HYDROCHLORIDE
     Indication: Product used for unknown indication
     Dosage: ONGOING
     Route: 048
     Dates: start: 20210215
  12. DOMPERIDONE [Concomitant]
     Active Substance: DOMPERIDONE
     Indication: Product used for unknown indication
     Dosage: ONGOING
     Route: 048
     Dates: start: 202109
  13. NORTRIPTYLINE [Concomitant]
     Active Substance: NORTRIPTYLINE
     Indication: Product used for unknown indication
     Dosage: ONGOING
     Route: 048
     Dates: start: 20210226
  14. ONDANSETRON [Concomitant]
     Active Substance: ONDANSETRON
     Indication: Product used for unknown indication
     Dosage: ONGOING
     Route: 048
     Dates: start: 202109
  15. ALBUTEROL [Concomitant]
     Active Substance: ALBUTEROL
     Indication: Product used for unknown indication
     Dosage: 4 (UNITS NOT SPECIFIED)?ONGOING
     Route: 055
     Dates: start: 20220605
  16. CODEINE PHOSPHATE [Concomitant]
     Active Substance: CODEINE PHOSPHATE
     Indication: Product used for unknown indication
     Dosage: ONGOING
     Route: 048
     Dates: start: 20220621
  17. NADOLOL [Concomitant]
     Active Substance: NADOLOL
     Indication: Product used for unknown indication
     Dosage: ONGOING
     Route: 048
     Dates: start: 20220623
  18. CYCLIZINE [Concomitant]
     Active Substance: CYCLIZINE
     Indication: Product used for unknown indication
     Dosage: ONGOING
     Route: 048
     Dates: start: 202109
  19. ENSURE DIETARY SUPPLEMENT [Concomitant]
     Indication: Prophylaxis
     Dosage: 2 (UNITS NOT SPECIFIED)
     Route: 048
     Dates: start: 20220623
  20. PREDNISONE [Concomitant]
     Active Substance: PREDNISONE
     Indication: Fatigue
     Route: 048
     Dates: start: 20220814
  21. PREDNISONE [Concomitant]
     Active Substance: PREDNISONE
     Route: 048
     Dates: start: 20221025
  22. OXYCODONE [Concomitant]
     Active Substance: OXYCODONE
     Indication: Product used for unknown indication
     Dosage: ONGOING
     Route: 048
     Dates: start: 20220809
  23. OMEPRAZOLE [Concomitant]
     Active Substance: OMEPRAZOLE
     Indication: Prophylaxis
     Route: 048
     Dates: start: 20210119
  24. HYDROCORTISONE [Concomitant]
     Active Substance: HYDROCORTISONE
     Indication: Vascular access site erythema
     Dosage: 1 (UNITS NOT SPECIFIED)
     Route: 061
     Dates: start: 20221108

REACTIONS (2)
  - Sepsis [Recovering/Resolving]
  - Coronavirus infection [Recovering/Resolving]

NARRATIVE: CASE EVENT DATE: 20221208
